FAERS Safety Report 15831824 (Version 1)
Quarter: 2018Q4

REPORT INFORMATION
  Report Type: Spontaneous
  Country: US (occurrence: US)
  Receive Date: 20181219
  Receipt Date: 20181219
  Transmission Date: 20190205
  Serious: No
  Sender: FDA-Public Use
  Company Number: None

PATIENT
  Age: 83 Year
  Sex: Female
  Weight: 71.67 kg

DRUGS (1)
  1. ENBREL [Suspect]
     Active Substance: ETANERCEPT
     Indication: RHEUMATOID ARTHRITIS
     Dosage: INJECT 50MG SUBCUTANEOUSLY  ONCE WEEKLY   AS DIRECTED *MAY  CAUSD DIZZINESS*
     Route: 058
     Dates: start: 201307

REACTIONS (2)
  - Infection [None]
  - Arthropod bite [None]
